FAERS Safety Report 7267402-X (Version None)
Quarter: 2011Q1

REPORT INFORMATION
  Report Type: 
  Country: None (occurrence: None)
  Receive Date: 20110201
  Receipt Date: 20101013
  Transmission Date: 20110831
  Serious: No
  Sender: FDA-Public Use
  Company Number: A0887463A

PATIENT
  Age: 54 Year
  Sex: Female

DRUGS (1)
  1. ARIXTRA [Suspect]

REACTIONS (2)
  - PLATELET COUNT INCREASED [None]
  - INFLUENZA [None]
